FAERS Safety Report 4853481-3 (Version None)
Quarter: 2005Q4

REPORT INFORMATION
  Report Type: 
  Country: None (occurrence: None)
  Receive Date: 20051212
  Receipt Date: 20051129
  Transmission Date: 20060501
  Serious: Yes (Hospitalization)
  Sender: FDA-Public Use
  Company Number: AU_050708717

PATIENT
  Age: 43 Year
  Sex: Male

DRUGS (3)
  1. ZYPREXA [Suspect]
     Indication: PSYCHOTIC DISORDER
     Dosage: 30 MG, EACH EVENING
     Dates: start: 20000101, end: 20050701
  2. HALOPERIDOL [Suspect]
     Dosage: 5 MG, 2/D
  3. STELAZINE (TRIFLUOPERAZINE HYDROCHORIDE) [Concomitant]

REACTIONS (4)
  - CARDIAC FAILURE [None]
  - CARDIOMYOPATHY [None]
  - CORONARY ARTERY DISEASE [None]
  - PRESCRIBED OVERDOSE [None]
